FAERS Safety Report 8386565-6 (Version None)
Quarter: 2012Q2

REPORT INFORMATION
  Report Type: 
  Country: None (occurrence: None)
  Receive Date: 20120525
  Receipt Date: 20110817
  Transmission Date: 20120825
  Serious: No
  Sender: FDA-Public Use
  Company Number: US-GLAXOSMITHKLINE-A0941372A

PATIENT
  Age: 83 Year
  Sex: Male

DRUGS (2)
  1. VERAMYST [Suspect]
     Indication: SINUS POLYP
     Route: 045
     Dates: start: 20110803
  2. NO CONCURRENT MEDICATION [Concomitant]

REACTIONS (2)
  - INSOMNIA [None]
  - PRODUCT QUALITY ISSUE [None]
